FAERS Safety Report 7595972-0 (Version None)
Quarter: 2011Q3

REPORT INFORMATION
  Report Type: 
  Country: None (occurrence: None)
  Receive Date: 20110707
  Receipt Date: 20110624
  Transmission Date: 20111222
  Serious: Yes (Other)
  Sender: FDA-Public Use
  Company Number: PHHY2011US50821

PATIENT
  Sex: Female
  Weight: 18.3 kg

DRUGS (3)
  1. AFINITOR [Suspect]
     Indication: TUBEROUS SCLEROSIS
     Dosage: 2.5 MG, DAILY
     Route: 048
     Dates: start: 20110222
  2. DIASTAT [Concomitant]
  3. TRILEPTAL [Suspect]

REACTIONS (5)
  - NEOPLASM PROGRESSION [None]
  - DECREASED APPETITE [None]
  - MOOD ALTERED [None]
  - BLOOD PRESSURE DECREASED [None]
  - POOR QUALITY SLEEP [None]
